FAERS Safety Report 4458074-8 (Version None)
Quarter: 2004Q3

REPORT INFORMATION
  Report Type: 
  Country: None (occurrence: None)
  Receive Date: 20040922
  Receipt Date: 20040908
  Transmission Date: 20050211
  Serious: Yes (Hospitalization, Disabling)
  Sender: FDA-Public Use
  Company Number: 2004-00808FE

PATIENT
  Age: 71 Year
  Sex: Female

DRUGS (1)
  1. PENTASA [Suspect]
     Indication: CROHN'S DISEASE
     Dosage: 3 G ORALLY
     Route: 048
     Dates: start: 20040101, end: 20040906

REACTIONS (4)
  - DECUBITUS ULCER [None]
  - DYSPNOEA [None]
  - PULMONARY TOXICITY [None]
  - SLEEP DISORDER [None]
